FAERS Safety Report 18892710 (Version 5)
Quarter: 2021Q4

REPORT INFORMATION
  Report Type: Report from Study
  Country: CA (occurrence: CA)
  Receive Date: 20210215
  Receipt Date: 20211114
  Transmission Date: 20220304
  Serious: Yes (Hospitalization)
  Sender: FDA-Public Use
  Company Number: CA-SAMSUNG BIOEPIS-SB-2020-37702

PATIENT
  Age: 55 Year
  Sex: Female
  Weight: 131.81 kg

DRUGS (16)
  1. RENFLEXIS [Suspect]
     Active Substance: INFLIXIMAB-ABDA
     Indication: Crohn^s disease
     Route: 042
     Dates: start: 20200605
  2. RENFLEXIS [Suspect]
     Active Substance: INFLIXIMAB-ABDA
     Route: 042
  3. RENFLEXIS [Suspect]
     Active Substance: INFLIXIMAB-ABDA
     Route: 042
     Dates: start: 20201215
  4. RENFLEXIS [Suspect]
     Active Substance: INFLIXIMAB-ABDA
     Dosage: VIAL
     Route: 042
  5. RENFLEXIS [Suspect]
     Active Substance: INFLIXIMAB-ABDA
     Route: 065
     Dates: start: 20201224
  6. RENFLEXIS [Suspect]
     Active Substance: INFLIXIMAB-ABDA
     Dosage: VIALS
     Route: 065
     Dates: end: 20211018
  7. PREDNISONE [Suspect]
     Active Substance: PREDNISONE
     Indication: Product used for unknown indication
     Dosage: 5 MILLIGRAM TEN TABLETS DAILY
     Route: 065
  8. PREDNISONE [Suspect]
     Active Substance: PREDNISONE
     Dosage: UNKNOWN, 4 TABLETS DAILY
     Route: 065
  9. PREDNISONE [Suspect]
     Active Substance: PREDNISONE
     Route: 065
  10. ASPIRIN [Concomitant]
     Active Substance: ASPIRIN
     Indication: Myocardial infarction
     Route: 065
  11. SIMVASTATIN [Concomitant]
     Active Substance: SIMVASTATIN
     Indication: Product used for unknown indication
     Route: 065
  12. AZATHIOPRINE [Concomitant]
     Active Substance: AZATHIOPRINE
     Indication: Product used for unknown indication
     Dosage: ONE TABLET
     Route: 065
  13. AZATHIOPRINE [Concomitant]
     Active Substance: AZATHIOPRINE
     Route: 065
  14. ASPIRIN [Concomitant]
     Active Substance: ASPIRIN
     Indication: Product used for unknown indication
     Route: 065
  15. DIMENHYDRINATE [Concomitant]
     Active Substance: DIMENHYDRINATE
     Indication: Premedication
     Route: 065
  16. GRAVOL [Concomitant]
     Active Substance: DIMENHYDRINATE
     Indication: Premedication
     Route: 042

REACTIONS (6)
  - Crohn^s disease [Unknown]
  - Feeling abnormal [Not Recovered/Not Resolved]
  - Malaise [Unknown]
  - Sleep disorder [Unknown]
  - Off label use [Unknown]
  - Product use issue [Unknown]
